FAERS Safety Report 5923754-1 (Version None)
Quarter: 2008Q4

REPORT INFORMATION
  Report Type: 
  Country: None (occurrence: None)
  Receive Date: 20081020
  Receipt Date: 20081014
  Transmission Date: 20090506
  Serious: Yes (Other)
  Sender: FDA-Public Use
  Company Number: US-ASTRAZENECA-2008UW22564

PATIENT
  Age: 71 Year
  Sex: Female

DRUGS (6)
  1. ARIMIDEX [Suspect]
     Route: 048
     Dates: start: 20051001
  2. ASPIRIN [Concomitant]
  3. VITAMIN B COMPLEX CAP [Concomitant]
  4. LISINOPRIL [Concomitant]
     Route: 048
  5. TRIAMTERENE [Concomitant]
  6. AMITRIPTYLINE HCL [Concomitant]

REACTIONS (2)
  - ATRIAL FIBRILLATION [None]
  - MUSCLE SPASMS [None]
